FAERS Safety Report 10918282 (Version 2)
Quarter: 2015Q2

REPORT INFORMATION
  Report Type: Spontaneous
  Country: US (occurrence: US)
  Receive Date: 20150316
  Receipt Date: 20150611
  Transmission Date: 20150821
  Serious: No
  Sender: FDA-Public Use
  Company Number: US-ASTELLAS-2015US000373

PATIENT
  Sex: Male

DRUGS (1)
  1. XTANDI [Suspect]
     Active Substance: ENZALUTAMIDE
     Indication: HORMONE-REFRACTORY PROSTATE CANCER
     Route: 048
     Dates: start: 20141212, end: 201412

REACTIONS (6)
  - Fatigue [Unknown]
  - Myalgia [Unknown]
  - Vomiting [Unknown]
  - Adverse drug reaction [Unknown]
  - Decreased appetite [Unknown]
  - Nausea [Unknown]
